FAERS Safety Report 5841745-6 (Version None)
Quarter: 2008Q3

REPORT INFORMATION
  Report Type: 
  Country: None (occurrence: None)
  Receive Date: 20080811
  Receipt Date: 20080811
  Transmission Date: 20090109
  Serious: No
  Sender: FDA-Public Use
  Company Number: None

PATIENT
  Age: 49 Year
  Sex: Male
  Weight: 111.6 kg

DRUGS (1)
  1. ADALIMUMAB [Suspect]
     Indication: RHEUMATOID ARTHRITIS
     Dosage: 0.8 ML OTHER SQ
     Route: 058
     Dates: start: 20070628, end: 20080508

REACTIONS (1)
  - UPPER RESPIRATORY TRACT INFECTION [None]
